FAERS Safety Report 10373820 (Version 1)
Quarter: 2014Q1

REPORT INFORMATION
  Report Type: Spontaneous
  Country: US (occurrence: None)
  Receive Date: 20140306
  Receipt Date: 20140306
  Transmission Date: 20141002
  Serious: Yes (Other)
  Sender: FDA-Public Use
  Company Number: 163-21880-13094318

PATIENT
  Age: 83 Year
  Sex: Male
  Weight: 106.6 kg

DRUGS (4)
  1. REVLIMID (LENALIDOMIDE) (5 MILLIGRAM, CAPSULES) [Suspect]
     Indication: PLASMA CELL MYELOMA
     Dosage: 1 IN 1 D
     Route: 048
     Dates: start: 20100925
  2. DEXAMETHASONE [Concomitant]
  3. LIPITOR (ATORVASTATIN) [Concomitant]
  4. FLUOXETINE HCL (FLUOXETINE HYDROCHLORIDE) [Concomitant]

REACTIONS (1)
  - Thrombosis [None]
